FAERS Safety Report 8825573 (Version 3)
Quarter: 2013Q2

REPORT INFORMATION
  Report Type: Spontaneous
  Country: JP (occurrence: JP)
  Receive Date: 20121004
  Receipt Date: 20130415
  Transmission Date: 20140414
  Serious: Yes (Hospitalization)
  Sender: FDA-Public Use
  Company Number: JP-B.I. PHARMACEUTICALS,INC./RIDGEFIELD-2012-BP-22551NB

PATIENT
  Age: 81 Year
  Sex: Male
  Weight: 47.2 kg

DRUGS (4)
  1. PRAZAXA [Suspect]
     Indication: ATRIAL FIBRILLATION
     Dosage: 220 MG
     Route: 048
     Dates: start: 20120613, end: 20120726
  2. PRAZAXA [Suspect]
     Dosage: 110 MG
     Route: 048
  3. EMULGENT (NOT SPECIFIED) [Concomitant]
     Indication: PLEURAL EFFUSION
     Route: 065
  4. HEPARIN [Concomitant]
     Indication: ATRIAL FIBRILLATION

REACTIONS (5)
  - Pleural effusion [Unknown]
  - Rectal ulcer [Not Recovered/Not Resolved]
  - Melaena [Recovered/Resolved]
  - Activated partial thromboplastin time prolonged [Recovered/Resolved]
  - Constipation [Recovered/Resolved]
